FAERS Safety Report 17562302 (Version 1)
Quarter: 2020Q1

REPORT INFORMATION
  Report Type: Report from Study
  Country: US (occurrence: US)
  Receive Date: 20200319
  Receipt Date: 20200319
  Transmission Date: 20200409
  Serious: Yes (Death)
  Sender: FDA-Public Use
  Company Number: US-PFIZER INC-2020117293

PATIENT
  Age: 76 Year

DRUGS (4)
  1. METHOTREXATE SODIUM. [Suspect]
     Active Substance: METHOTREXATE SODIUM
     Indication: B-CELL LYMPHOMA
     Dosage: 4 G/SQ M (DAY 2)
  2. CYTARABINE. [Suspect]
     Active Substance: CYTARABINE
     Indication: B-CELL LYMPHOMA
     Dosage: 2 G/SQ M EVERY 12 H (DAYS 3, 4)
  3. RITUXIMAB. [Suspect]
     Active Substance: RITUXIMAB
     Indication: B-CELL LYMPHOMA
     Dosage: 375 MG/M2, CYCLIC, (375 MG/SQ M (DAYS 1, 6))
  4. THIOTEPA. [Suspect]
     Active Substance: THIOTEPA
     Indication: B-CELL LYMPHOMA
     Dosage: 30 MG/M2, CYCLIC, (30 MG/SQ M (DAY 5))

REACTIONS (2)
  - Febrile neutropenia [Fatal]
  - Sepsis [Fatal]
